FAERS Safety Report 5061467-1 (Version None)
Quarter: 2006Q3

REPORT INFORMATION
  Report Type: 
  Country: None (occurrence: None)
  Receive Date: 20060719
  Receipt Date: 20060719
  Transmission Date: 20061208
  Serious: Yes (Hospitalization)
  Sender: FDA-Public Use
  Company Number: None

PATIENT
  Age: 86 Year
  Sex: Male
  Weight: 99.7913 kg

DRUGS (23)
  1. CLONIDINE [Suspect]
     Indication: HYPERTENSION
     Dosage: 0.3 MG/24 HR PATCH
  2. LISINOPRIL [Suspect]
     Indication: HYPERTENSION
     Dosage: 30 MG DAILY
  3. TERAZOSIN HCL [Suspect]
     Indication: BENIGN PROSTATIC HYPERPLASIA
     Dosage: 10 MG QHS
  4. VERAPAMIL [Suspect]
     Indication: HYPERTENSION
     Dosage: 180MG SA BID
  5. FUROSEMIDE [Suspect]
     Dosage: 80 MG BID
  6. ACETAMINOPHEN 300/CODEINE [Concomitant]
  7. BUPROPION HCL [Concomitant]
  8. CAPSAICIN [Concomitant]
  9. CLONIDINE [Concomitant]
  10. CLOTRIMAZOLE [Concomitant]
  11. FERROUS SULFATE TAB [Concomitant]
  12. FLUOXETINE HCL [Concomitant]
  13. FUROSEMIDE [Concomitant]
  14. HC 1% CREAM/EUCERIN [Concomitant]
  15. HYDROPHILIC TOP OINT [Concomitant]
  16. LACTULOSE [Concomitant]
  17. LISINOPRIL [Concomitant]
  18. OMEPRAZOLE [Concomitant]
  19. POTASSIUM CL [Concomitant]
  20. SIMVASTATIN [Concomitant]
  21. TERAZOSIN HCL [Concomitant]
  22. VERAPAMIL HCL [Concomitant]
  23. ASPIRIN [Concomitant]

REACTIONS (2)
  - BRADYCARDIA [None]
  - HYPOTENSION [None]
